FAERS Safety Report 9783049 (Version 2)
Quarter: 2014Q1

REPORT INFORMATION
  Report Type: Report from Study
  Country: GR (occurrence: GR)
  Receive Date: 20131226
  Receipt Date: 20140224
  Transmission Date: 20141002
  Serious: Yes (Death)
  Sender: FDA-Public Use
  Company Number: GR-ASTELLAS-2013US013350

PATIENT
  Age: 76 Year
  Sex: Male

DRUGS (1)
  1. ERLOTINIB TABLET [Suspect]
     Indication: ADENOCARCINOMA
     Dosage: 150 DF, UNKNOWN/D
     Route: 065
     Dates: start: 20121004, end: 20121006

REACTIONS (1)
  - Death [Fatal]
